FAERS Safety Report 4398854-0 (Version None)
Quarter: 2004Q2

REPORT INFORMATION
  Report Type: 
  Country: None (occurrence: None)
  Receive Date: 20040621
  Receipt Date: 20040213
  Transmission Date: 20050107
  Serious: Yes (Death, Other)
  Sender: FDA-Public Use
  Company Number: USA-2003-0007704

PATIENT
  Age: 27 Year
  Sex: Female
  Weight: 58.5 kg

DRUGS (11)
  1. OXYCODONE HCL [Suspect]
  2. MORPHINE SULFATE [Suspect]
  3. TRAMADOL (TRAMADOL) [Suspect]
  4. COCAINE (COCAINE) [Suspect]
  5. DIAZEPAM [Suspect]
  6. CAFFEINE (CAFFEINE) [Suspect]
  7. NICOTINE [Suspect]
  8. LIDOCAINE [Suspect]
  9. XANAX [Suspect]
  10. CANNABIS (CANNABIS) [Suspect]
  11. SALICYLATES (SALICYLATES) [Suspect]

REACTIONS (2)
  - DRUG ABUSER [None]
  - MULTIPLE DRUG OVERDOSE ACCIDENTAL [None]
